FAERS Safety Report 11822416 (Version 1)
Quarter: 2015Q4

REPORT INFORMATION
  Report Type: Spontaneous
  Country: US (occurrence: US)
  Receive Date: 20151210
  Receipt Date: 20151210
  Transmission Date: 20160305
  Serious: No
  Sender: FDA-Public Use
  Company Number: US-ENDO PHARMACEUTICALS INC.-2015-004562

PATIENT
  Age: 84 Year
  Sex: Female
  Weight: 66.28 kg

DRUGS (1)
  1. TEMAZEPAM CAPSULES 30MG [Suspect]
     Active Substance: TEMAZEPAM
     Indication: SLEEP DISORDER
     Route: 048
     Dates: start: 20151130, end: 20151130

REACTIONS (2)
  - Product difficult to swallow [Recovered/Resolved]
  - Dysgeusia [Recovered/Resolved]

NARRATIVE: CASE EVENT DATE: 20151130
